FAERS Safety Report 15020898 (Version 1)
Quarter: 2018Q2

REPORT INFORMATION
  Report Type: Spontaneous
  Country: US (occurrence: US)
  Receive Date: 20180618
  Receipt Date: 20180618
  Transmission Date: 20180711
  Serious: No
  Sender: FDA-Public Use
  Company Number: US-PFIZER INC-2018245522

PATIENT
  Age: 76 Year
  Sex: Female
  Weight: 48.53 kg

DRUGS (1)
  1. LYRICA [Suspect]
     Active Substance: PREGABALIN
     Indication: NEUROPATHY PERIPHERAL
     Dosage: UNK MORE THAN 25MG (SHE DOES NOT REMEMBER EXACTLY)

REACTIONS (2)
  - Hypoacusis [Unknown]
  - Drug ineffective [Unknown]
